FAERS Safety Report 7037955-5 (Version None)
Quarter: 2010Q4

REPORT INFORMATION
  Report Type: 
  Country: None (occurrence: None)
  Receive Date: 20101011
  Receipt Date: 20100922
  Transmission Date: 20110411
  Serious: Yes (Death, Hospitalization)
  Sender: FDA-Public Use
  Company Number: US-SANOFI-AVENTIS-2009SA002122

PATIENT
  Age: 65 Year
  Sex: Male
  Weight: 63.5 kg

DRUGS (11)
  1. PLAVIX [Suspect]
     Indication: CEREBROVASCULAR ACCIDENT PROPHYLAXIS
     Route: 048
     Dates: end: 20070705
  2. LIPITOR [Concomitant]
     Route: 048
     Dates: end: 20070705
  3. LISINOPRIL [Concomitant]
     Route: 048
  4. ATENOLOL [Concomitant]
     Route: 048
  5. NORVASC [Concomitant]
  6. DOCUSATE SODIUM [Concomitant]
  7. GLUCOSAMINE [Concomitant]
  8. NITROGLYCERIN ^SLOVAKOFARMA^ [Concomitant]
     Route: 060
  9. CENTRUM [Concomitant]
  10. MOTRIN [Concomitant]
  11. TYLENOL [Concomitant]

REACTIONS (15)
  - ABDOMINAL PAIN [None]
  - ARRHYTHMIA [None]
  - CONJUNCTIVITIS [None]
  - CONVULSION [None]
  - DIZZINESS [None]
  - EYE PRURITUS [None]
  - GASTROINTESTINAL HAEMORRHAGE [None]
  - HYPERHIDROSIS [None]
  - INFLUENZA [None]
  - LACRIMATION INCREASED [None]
  - PRURITUS [None]
  - RHINITIS ALLERGIC [None]
  - SYNCOPE [None]
  - VISION BLURRED [None]
  - VOMITING [None]
